FAERS Safety Report 8082357 (Version 3)
Quarter: 2014Q2

REPORT INFORMATION
  Report Type: Spontaneous
  Country: US (occurrence: US)
  Receive Date: 20110809
  Receipt Date: 20140605
  Transmission Date: 20141212
  Serious: Yes (Hospitalization)
  Sender: FDA-Public Use
  Company Number: US-GLAXOSMITHKLINE-A0865135A

PATIENT
  Age: 60 Year
  Sex: Male
  Weight: 126.4 kg

DRUGS (7)
  1. AVANDIA [Suspect]
     Indication: TYPE 2 DIABETES MELLITUS
     Dosage: 8MG PER DAY
     Route: 048
     Dates: start: 20020722, end: 200705
  2. METFORMIN [Concomitant]
  3. LISINOPRIL [Concomitant]
  4. WARFARIN [Concomitant]
  5. GLYBURIDE [Concomitant]
  6. DILTIAZEM [Concomitant]
  7. ASPIRIN [Concomitant]

REACTIONS (3)
  - Myocardial infarction [Recovering/Resolving]
  - Cardiac pacemaker insertion [Unknown]
  - Stent placement [Unknown]
